FAERS Safety Report 18447278 (Version 5)
Quarter: 2021Q1

REPORT INFORMATION
  Report Type: Spontaneous
  Country: FR (occurrence: FR)
  Receive Date: 20201030
  Receipt Date: 20210226
  Transmission Date: 20210419
  Serious: Yes (Hospitalization, Other)
  Sender: FDA-Public Use
  Company Number: FR-GILEAD-2020-0502110

PATIENT
  Age: 45 Year
  Sex: Male
  Weight: 48 kg

DRUGS (5)
  1. BIKTARVY [Suspect]
     Active Substance: BICTEGRAVIR SODIUM\EMTRICITABINE\TENOFOVIR ALAFENAMIDE FUMARATE
     Indication: HIV INFECTION
     Dosage: 1 DOSAGE FORM, QD
     Route: 048
     Dates: start: 20190729
  2. COVERSYL [Concomitant]
     Active Substance: PERINDOPRIL
     Indication: VASCULAR DISORDER PROPHYLAXIS
     Dosage: UNK
     Route: 048
     Dates: start: 20150101
  3. KARDEGIC [Concomitant]
     Active Substance: ASPIRIN DL-LYSINE
     Indication: VASCULAR DISORDER PROPHYLAXIS
     Dosage: UNK
     Route: 048
     Dates: start: 20150101
  4. CRESTOR [Concomitant]
     Active Substance: ROSUVASTATIN CALCIUM
     Indication: VASCULAR DISORDER PROPHYLAXIS
     Dosage: UNK
     Route: 048
     Dates: start: 20150101
  5. BIKTARVY [Suspect]
     Active Substance: BICTEGRAVIR SODIUM\EMTRICITABINE\TENOFOVIR ALAFENAMIDE FUMARATE
     Dosage: 1 DOSAGE FORM, QD
     Route: 050

REACTIONS (5)
  - Pancreatic duct rupture [Not Recovered/Not Resolved]
  - Peritonitis [Recovered/Resolved]
  - Pancreatitis [Recovered/Resolved]
  - Chronic kidney disease [Not Recovered/Not Resolved]
  - Wrong technique in product usage process [Recovered/Resolved]

NARRATIVE: CASE EVENT DATE: 20201016
